FAERS Safety Report 5819825-0 (Version None)
Quarter: 2008Q3

REPORT INFORMATION
  Report Type: 
  Country: None (occurrence: None)
  Receive Date: 20080723
  Receipt Date: 20080711
  Transmission Date: 20090109
  Serious: Yes (Other)
  Sender: FDA-Public Use
  Company Number: US-PFIZER INC-2008059465

PATIENT
  Sex: Female
  Weight: 128.4 kg

DRUGS (2)
  1. LYRICA [Suspect]
     Indication: FIBROMYALGIA
     Route: 048
     Dates: start: 20070101, end: 20080601
  2. DRUG, UNSPECIFIED [Concomitant]

REACTIONS (7)
  - IMPAIRED DRIVING ABILITY [None]
  - MEMORY IMPAIRMENT [None]
  - PERFORMANCE STATUS DECREASED [None]
  - ROAD TRAFFIC ACCIDENT [None]
  - SOMNAMBULISM [None]
  - UNEVALUABLE EVENT [None]
  - UPPER LIMB FRACTURE [None]
